FAERS Safety Report 6500142-0 (Version None)
Quarter: 2009Q4

REPORT INFORMATION
  Report Type: 
  Country: None (occurrence: None)
  Receive Date: 20091216
  Receipt Date: 20091209
  Transmission Date: 20100525
  Serious: Yes (Other)
  Sender: FDA-Public Use
  Company Number: FR-ASTRAZENECA-2009SE31304

PATIENT
  Age: 51 Year
  Sex: Male

DRUGS (4)
  1. AVLOCARDYL [Suspect]
     Indication: ESSENTIAL TREMOR
     Route: 048
  2. CRESTOR [Suspect]
     Indication: DYSLIPIDAEMIA
     Route: 048
     Dates: start: 20070101
  3. MUTAGRIP [Suspect]
     Indication: ANTIVIRAL PROPHYLAXIS
     Dosage: SINGLE DOSE
     Route: 030
     Dates: start: 20090929, end: 20090929
  4. KARDEGIC [Suspect]
     Indication: PROPHYLAXIS
     Route: 048

REACTIONS (3)
  - DEAFNESS NEUROSENSORY [None]
  - EYE PAIN [None]
  - TINNITUS [None]
